FAERS Safety Report 8084445-7 (Version None)
Quarter: 2012Q1

REPORT INFORMATION
  Report Type: 
  Country: None (occurrence: None)
  Receive Date: 20120128
  Receipt Date: 20110322
  Transmission Date: 20120608
  Serious: No
  Sender: FDA-Public Use
  Company Number: US-ABBOTT-11P-163-0713968-00

PATIENT
  Sex: Female
  Weight: 83.99 kg

DRUGS (6)
  1. LISINOPRIL [Concomitant]
     Indication: HYPERTENSION
  2. CARVEDILOL [Concomitant]
     Indication: HYPERTENSION
  3. PAROXETINE [Concomitant]
     Indication: DEPRESSION
  4. HUMIRA [Suspect]
     Indication: PSORIASIS
     Dates: start: 20101001
  5. SORIATANE [Concomitant]
     Indication: PSORIASIS
  6. FUROSEMIDE [Concomitant]
     Indication: FLUID RETENTION

REACTIONS (2)
  - WRONG TECHNIQUE IN DRUG USAGE PROCESS [None]
  - INCORRECT DOSE ADMINISTERED [None]
